FAERS Safety Report 20437572 (Version 1)
Quarter: 2022Q1

REPORT INFORMATION
  Report Type: Report from Study
  Country: US (occurrence: US)
  Receive Date: 20220207
  Receipt Date: 20220207
  Transmission Date: 20220423
  Serious: Yes (Other)
  Sender: FDA-Public Use
  Company Number: US-GLAXOSMITHKLINE-US2021AMR007974

PATIENT
  Sex: Female

DRUGS (1)
  1. BELANTAMAB MAFODOTIN [Suspect]
     Active Substance: BELANTAMAB MAFODOTIN
     Indication: Product used for unknown indication
     Dosage: UNK
     Dates: start: 20201208

REACTIONS (10)
  - Deafness [Unknown]
  - Cataract [Unknown]
  - Neutropenia [Unknown]
  - Keratopathy [Unknown]
  - Visual acuity reduced [Unknown]
  - Ocular discomfort [Unknown]
  - Lens disorder [Unknown]
  - Hypersensitivity [Unknown]
  - Ill-defined disorder [Unknown]
  - White blood cell count abnormal [Unknown]
